FAERS Safety Report 4835513-1 (Version None)
Quarter: 2005Q4

REPORT INFORMATION
  Report Type: 
  Country: None (occurrence: None)
  Receive Date: 20051121
  Receipt Date: 20051109
  Transmission Date: 20060501
  Serious: Yes (Death, Hospitalization)
  Sender: FDA-Public Use
  Company Number: USA0511112667

PATIENT
  Age: 56 Year
  Sex: Female

DRUGS (12)
  1. CYMBALTA [Suspect]
     Indication: DEPRESSION
     Dosage: 60 MG, DAILY (1/D), ORAL
     Route: 048
     Dates: start: 20050101, end: 20050101
  2. MS CONTIN [Concomitant]
  3. SYNTHROID [Concomitant]
  4. CELEBREX [Concomitant]
  5. MIRTAZAPINE [Concomitant]
  6. GABAPENTIN [Concomitant]
  7. LORAZEPAM [Concomitant]
  8. METHOCARBAMOL [Concomitant]
  9. PROMETHAZINE [Concomitant]
  10. TRAMADOL HCL [Concomitant]
  11. HYDROCODONE BITARTRATE + ACETAMINOPHEN [Concomitant]
  12. EXTRA STRENGTH TYLENOL [Concomitant]

REACTIONS (19)
  - ASCITES [None]
  - AUTOIMMUNE HEPATITIS [None]
  - BILIARY TRACT DISORDER [None]
  - ENCEPHALOPATHY [None]
  - GENERAL PHYSICAL HEALTH DETERIORATION [None]
  - GLOBULINS INCREASED [None]
  - HALLUCINATION [None]
  - HEPATIC CIRRHOSIS [None]
  - HEPATIC FAILURE [None]
  - HEPATIC FIBROSIS [None]
  - HEPATIC NECROSIS [None]
  - HEPATOTOXICITY [None]
  - HYPOKALAEMIA [None]
  - HYPONATRAEMIA [None]
  - MALAISE [None]
  - PORTAL HYPERTENSION [None]
  - SMOOTH MUSCLE ANTIBODY POSITIVE [None]
  - SPLENOMEGALY [None]
  - URINARY TRACT DISORDER [None]
